FAERS Safety Report 6442439-9 (Version None)
Quarter: 2009Q4

REPORT INFORMATION
  Report Type: 
  Country: None (occurrence: None)
  Receive Date: 20091112
  Receipt Date: 20091102
  Transmission Date: 20100525
  Serious: Yes (Hospitalization)
  Sender: FDA-Public Use
  Company Number: 2009AL006988

PATIENT
  Age: 86 Year
  Sex: Female

DRUGS (1)
  1. FLUOXETINE [Suspect]
     Dosage: 20 MG;QD

REACTIONS (6)
  - CARBON MONOXIDE DIFFUSING CAPACITY DECREASED [None]
  - COLON CANCER [None]
  - COMPUTERISED TOMOGRAM THORAX ABNORMAL [None]
  - DYSPNOEA [None]
  - OXYGEN SATURATION DECREASED [None]
  - RALES [None]
